FAERS Safety Report 6950516 (Version 4)
Quarter: 2012Q4

REPORT INFORMATION
  Report Type: 
  Country: DE (occurrence: DE)
  Receive Date: 20090325
  Receipt Date: 20120911
  Transmission Date: 20130627
  Serious: Yes (Death, Hospitalization)
  Sender: FDA-Public Use
  Company Number: DE-RANBAXY-2009RR-22796

PATIENT
  Age: 45 Year
  Sex: Male
  Weight: 75 kg

DRUGS (2)
  1. ENALAPRIL [Suspect]
     Indication: HYPERTENSION
     Dosage: 10 mg, qd
     Route: 048
  2. ENALAPRIL\HYDROCHLOROTHIAZIDE [Suspect]
     Indication: HYPERTENSION
     Dosage: 1 DF, qd
     Route: 048

REACTIONS (1)
  - Hyperglycaemia [Not Recovered/Not Resolved]
